FAERS Safety Report 4617855-8 (Version None)
Quarter: 2005Q1

REPORT INFORMATION
  Report Type: 
  Country: None (occurrence: None)
  Receive Date: 20050324
  Receipt Date: 20050217
  Transmission Date: 20050727
  Serious: Yes (Other)
  Sender: FDA-Public Use
  Company Number: AU-GLAXOSMITHKLINE-B0373094A

PATIENT
  Age: 48 Year
  Sex: Female
  Weight: 90 kg

DRUGS (6)
  1. AVANDIA [Suspect]
     Dosage: 8MG TWICE PER DAY
     Route: 048
     Dates: start: 20050210, end: 20050213
  2. DIAFORMIN [Concomitant]
     Dosage: 500MG THREE TIMES PER DAY
  3. GOPTEN [Concomitant]
     Indication: BLOOD PRESSURE
     Dosage: 2MG IN THE MORNING
  4. LIPEX [Concomitant]
     Indication: BLOOD CHOLESTEROL INCREASED
     Dosage: 20MG AT NIGHT
  5. NORVASC [Concomitant]
  6. TEMAZEPAM [Concomitant]

REACTIONS (6)
  - BLOOD GLUCOSE DECREASED [None]
  - DIARRHOEA [None]
  - DIZZINESS [None]
  - OVERDOSE [None]
  - PHARMACEUTICAL PRODUCT COMPLAINT [None]
  - VOMITING [None]
